FAERS Safety Report 6637746-0 (Version None)
Quarter: 2010Q1

REPORT INFORMATION
  Report Type: 
  Country: None (occurrence: None)
  Receive Date: 20100317
  Receipt Date: 20100309
  Transmission Date: 20100710
  Serious: Yes (Hospitalization)
  Sender: FDA-Public Use
  Company Number: DE-ABBOTT-10P-062-0631520-00

PATIENT
  Age: 51 Year
  Sex: Male
  Weight: 95 kg

DRUGS (3)
  1. HUMIRA [Suspect]
     Indication: ANKYLOSING SPONDYLITIS
     Route: 058
     Dates: start: 20090501, end: 20100201
  2. DICLOFENAC [Concomitant]
     Indication: PAIN
     Route: 048
     Dates: start: 20000601
  3. GLUCOCORTICOIDS [Concomitant]
     Indication: ANKYLOSING SPONDYLITIS

REACTIONS (1)
  - FOOT DEFORMITY [None]
